FAERS Safety Report 4514996-0 (Version None)
Quarter: 2004Q4

REPORT INFORMATION
  Report Type: 
  Country: None (occurrence: None)
  Receive Date: 20041126
  Receipt Date: 20041112
  Transmission Date: 20050328
  Serious: Yes (Hospitalization)
  Sender: FDA-Public Use
  Company Number: 2004094823

PATIENT
  Age: 59 Year
  Sex: Male
  Weight: 76 kg

DRUGS (7)
  1. IRINOTECAN HCL [Suspect]
     Indication: COLON CANCER METASTATIC
     Dosage: (660 MG) INTRAVENOUS
     Route: 042
     Dates: start: 20040408
  2. SULFASALAZINE [Concomitant]
  3. FLUCONAZOLE [Concomitant]
  4. LEVOMEPROMAZINE (LEVOMEPROMAZINE) [Concomitant]
  5. CETIRIZINE (CETIRIZINE) [Concomitant]
  6. ONDANSETRON HCL [Concomitant]
  7. AMITRIPTYLINE HCL [Concomitant]

REACTIONS (3)
  - AUTOIMMUNE THROMBOCYTOPENIA [None]
  - CONTUSION [None]
  - SKIN NODULE [None]
